FAERS Safety Report 4949434-7 (Version None)
Quarter: 2006Q1

REPORT INFORMATION
  Report Type: 
  Country: None (occurrence: None)
  Receive Date: 20060321
  Receipt Date: 20060315
  Transmission Date: 20060701
  Serious: Yes (Hospitalization)
  Sender: FDA-Public Use
  Company Number: US-BRISTOL-MYERS SQUIBB COMPANY-13315841

PATIENT
  Age: 66 Year
  Sex: Female
  Weight: 94 kg

DRUGS (8)
  1. CARBIDOPA + LEVODOPA [Suspect]
     Indication: PARKINSON'S DISEASE
     Dosage: DOSAGE: 25MG/100MG
     Route: 048
     Dates: start: 20060208, end: 20060208
  2. LITHIUM CARBONATE [Suspect]
     Indication: BIPOLAR DISORDER
     Route: 048
     Dates: end: 20060208
  3. ARICEPT [Suspect]
     Route: 048
     Dates: start: 20060208, end: 20060208
  4. NORTRIPTYLINE HCL [Concomitant]
  5. CLORAZEPATE DIPOTASSIUM [Concomitant]
     Route: 048
  6. VICODIN [Concomitant]
     Indication: BACK PAIN
     Route: 048
  7. DARVOCET [Concomitant]
     Indication: BACK PAIN
     Route: 048
  8. ASPIRIN [Concomitant]
     Indication: PROPHYLAXIS
     Route: 048

REACTIONS (4)
  - BLOOD PRESSURE INCREASED [None]
  - HALLUCINATION [None]
  - INSOMNIA [None]
  - LOSS OF CONSCIOUSNESS [None]
